FAERS Safety Report 8053111-6 (Version None)
Quarter: 2012Q1

REPORT INFORMATION
  Report Type: 
  Country: None (occurrence: None)
  Receive Date: 20120118
  Receipt Date: 20120112
  Transmission Date: 20120608
  Serious: Yes (Life-Threatening)
  Sender: FDA-Public Use
  Company Number: GB-B.I. PHARMACEUTICALS,INC./RIDGEFIELD-2011-BP-28794YA

PATIENT
  Age: 69 Year
  Sex: Male
  Weight: 86 kg

DRUGS (19)
  1. AMOXICILLIN AND CLAVULANATE POTASSIUM [Concomitant]
     Dates: start: 20111121, end: 20111128
  2. CODEINE PHOSPHATE [Concomitant]
     Dates: start: 20111201
  3. OMEPRAZOLE [Concomitant]
     Dates: start: 20110906
  4. FLUTICASONE PROPIONATE/SALMETEROL [Concomitant]
     Dates: start: 20110906
  5. DIAZEPAM [Concomitant]
     Dates: start: 20110906, end: 20111208
  6. TIOPRONIN [Concomitant]
     Dates: start: 20110906
  7. DOTHIEPIN HYDROCHLORIDE [Concomitant]
     Dates: start: 20110906
  8. MORPHINE SULFATE [Concomitant]
     Dates: start: 20111103, end: 20111203
  9. FERROUS FUMERATE [Concomitant]
     Dates: start: 20110906
  10. SIMVASTATIN [Concomitant]
     Dates: start: 20110906
  11. AMOXICILLIN [Concomitant]
     Dates: start: 20111110, end: 20111117
  12. ANGITIL [Concomitant]
     Dates: start: 20110906
  13. RAMIPRIL [Concomitant]
     Dates: start: 20110906
  14. VENTOLIN [Concomitant]
     Dates: start: 20110906
  15. ASPIRIN [Concomitant]
     Dates: start: 20110906
  16. GLYCERYL TRINITRATE [Concomitant]
     Dates: start: 20110906, end: 20111004
  17. NITROFURANTOIN [Concomitant]
     Dates: start: 20111124, end: 20111206
  18. PREDNISOLONE [Concomitant]
     Dates: start: 20111110, end: 20111111
  19. TAMSULOSIN HCL [Suspect]
     Dates: start: 20111212

REACTIONS (4)
  - ANGIOEDEMA [None]
  - PALATAL OEDEMA [None]
  - HYPERSENSITIVITY [None]
  - SWELLING FACE [None]
